FAERS Safety Report 7279036-1 (Version None)
Quarter: 2011Q1

REPORT INFORMATION
  Report Type: 
  Country: None (occurrence: None)
  Receive Date: 20110207
  Receipt Date: 20110127
  Transmission Date: 20110831
  Serious: Yes (Hospitalization)
  Sender: FDA-Public Use
  Company Number: PHHY2011US06737

PATIENT
  Sex: Male

DRUGS (1)
  1. EXJADE [Suspect]
     Indication: HEREDITARY SPHEROCYTOSIS
     Dosage: 1500 MG DAILY
     Route: 048

REACTIONS (2)
  - DIARRHOEA [None]
  - MUSCLE SPASMS [None]
